FAERS Safety Report 17346654 (Version 2)
Quarter: 2020Q1

REPORT INFORMATION
  Report Type: Report from Study
  Country: PK (occurrence: PK)
  Receive Date: 20200130
  Receipt Date: 20200302
  Transmission Date: 20200409
  Serious: Yes (Death, Hospitalization)
  Sender: FDA-Public Use
  Company Number: NVSC2020PK022181

PATIENT
  Sex: Female
  Weight: 78 kg

DRUGS (1)
  1. GLIVEC [Suspect]
     Active Substance: IMATINIB MESYLATE
     Indication: CHRONIC MYELOID LEUKAEMIA
     Dosage: 400 MG, QD
     Route: 048
     Dates: start: 20180219

REACTIONS (5)
  - Haematemesis [Unknown]
  - Death [Fatal]
  - Eye pain [Unknown]
  - Eye swelling [Unknown]
  - Haemoglobin decreased [Unknown]
